FAERS Safety Report 4846869-8 (Version None)
Quarter: 2005Q4

REPORT INFORMATION
  Report Type: 
  Country: None (occurrence: None)
  Receive Date: 20051207
  Receipt Date: 20050819
  Transmission Date: 20060501
  Serious: Yes (Other)
  Sender: FDA-Public Use
  Company Number: FR-BOEHRINGER INGELHEIM PHARMACEUTICALS, INC.-2005-FF-00581FF

PATIENT
  Sex: Male
  Weight: 61 kg

DRUGS (8)
  1. TIPRANAVIR + RITONAVIR CO-ADMIN [Suspect]
     Indication: HIV INFECTION
     Dosage: TPV/RTV: 500/200 MG B.I.D.
     Route: 048
     Dates: start: 20050314, end: 20050629
  2. TIPRANAVIR + RITONAVIR CO-ADMIN [Suspect]
     Dosage: TPV/RTV: 750/200 MG B.I.D.
     Route: 048
     Dates: start: 20050630, end: 20050817
  3. TIPRANAVIR + RITONAVIR CO-ADMIN [Suspect]
     Route: 048
     Dates: start: 20050905, end: 20051025
  4. FUZEON [Concomitant]
     Indication: HIV INFECTION
     Route: 058
     Dates: start: 20050314, end: 20050817
  5. VIDEX [Concomitant]
     Indication: HIV INFECTION
     Route: 048
     Dates: start: 20050314, end: 20050817
  6. ABACAVIR [Concomitant]
     Indication: HIV INFECTION
     Route: 048
     Dates: start: 20050501, end: 20050817
  7. BACTRIM [Concomitant]
     Dosage: ONE TABLET DAILY
     Route: 048
  8. DIPROLENE [Concomitant]
     Route: 061
     Dates: start: 20050629

REACTIONS (2)
  - HEPATITIS [None]
  - HEPATITIS CHOLESTATIC [None]
